FAERS Safety Report 6133311-2 (Version None)
Quarter: 2009Q1

REPORT INFORMATION
  Report Type: 
  Country: None (occurrence: None)
  Receive Date: 20090324
  Receipt Date: 20090324
  Transmission Date: 20090719
  Serious: Yes (Other)
  Sender: FDA-Public Use
  Company Number: None

PATIENT
  Sex: Female

DRUGS (2)
  1. FLECAINIDE ACETATE [Suspect]
     Indication: HEART RATE IRREGULAR
     Dosage: 1 BY MOUTH TWICE A DAY
  2. ALPRAZOLAM [Concomitant]

REACTIONS (2)
  - HEART RATE IRREGULAR [None]
  - PRODUCT QUALITY ISSUE [None]
